FAERS Safety Report 9281143 (Version 7)
Quarter: 2024Q2

REPORT INFORMATION
  Report Type: Report from Study
  Country: CA (occurrence: CA)
  Receive Date: 20130509
  Receipt Date: 20240625
  Transmission Date: 20240716
  Serious: Yes (Life-Threatening, Hospitalization)
  Sender: FDA-Public Use
  Company Number: CA-JNJFOC-20130501221

PATIENT
  Age: 57 Year
  Sex: Male
  Weight: 98 kg

DRUGS (3)
  1. STELARA [Suspect]
     Active Substance: USTEKINUMAB
     Indication: Psoriasis
     Dosage: 45MG
     Route: 058
     Dates: start: 20090415, end: 20090415
  2. STELARA [Suspect]
     Active Substance: USTEKINUMAB
     Dosage: 45MG
     Route: 058
     Dates: start: 20100407, end: 20130123
  3. STELARA [Suspect]
     Active Substance: USTEKINUMAB
     Dosage: 90 MG, THE PATIENT^S DOSE OF USTEKINUMAB DUE ON 17-APR-2013 ?(LIQUID)
     Route: 058
     Dates: start: 20091021, end: 20100131

REACTIONS (3)
  - Retroperitoneal fibrosis [Not Recovered/Not Resolved]
  - Pulmonary embolism [Recovered/Resolved]
  - Deep vein thrombosis [Unknown]

NARRATIVE: CASE EVENT DATE: 20100104
